FAERS Safety Report 20227191 (Version 1)
Quarter: 2021Q4

REPORT INFORMATION
  Report Type: Spontaneous
  Country: US (occurrence: US)
  Receive Date: 20211224
  Receipt Date: 20211224
  Transmission Date: 20220303
  Serious: No
  Sender: FDA-Public Use
  Company Number: US-GSKCCFUS-Case-01250454_AE-73184

PATIENT
  Sex: Male

DRUGS (1)
  1. VENTOLIN HFA [Suspect]
     Active Substance: ALBUTEROL SULFATE
     Indication: Product used for unknown indication
     Dosage: 90 MG, 2 PUFF(S), EVERY 4 HOURS AS NEEDED
     Route: 055
     Dates: start: 201912

REACTIONS (1)
  - Wrong technique in product usage process [Unknown]
